FAERS Safety Report 8917306 (Version 3)
Quarter: 2013Q1

REPORT INFORMATION
  Report Type: Report from Study
  Country: GB (occurrence: GB)
  Receive Date: 20121120
  Receipt Date: 20130328
  Transmission Date: 20140127
  Serious: Yes (Life-Threatening, Hospitalization, Disabling, Other)
  Sender: FDA-Public Use
  Company Number: GB-INCYTE CORPORATION-2012IN002313

PATIENT
  Sex: Male
  Weight: 76 kg

DRUGS (3)
  1. INC424 [Suspect]
     Indication: MYELOFIBROSIS
     Dosage: 20 MG, BID
     Route: 048
     Dates: start: 20120710, end: 20120930
  2. ACETYLSALICYLIC ACID [Concomitant]
     Dosage: UNK
     Dates: start: 2001
  3. HYDROXYCARBAMIDE [Concomitant]

REACTIONS (1)
  - Progressive multifocal leukoencephalopathy [Not Recovered/Not Resolved]
